FAERS Safety Report 17030233 (Version 1)
Quarter: 2019Q4

REPORT INFORMATION
  Report Type: Spontaneous
  Country: US (occurrence: US)
  Receive Date: 20191010
  Receipt Date: 20191010
  Transmission Date: 20200122
  Serious: No
  Sender: FDA-Public Use
  Company Number: None

PATIENT
  Age: 71 Year
  Sex: Female

DRUGS (11)
  1. ATORVASTATIN CALCIUM. [Concomitant]
     Active Substance: ATORVASTATIN CALCIUM
  2. NATPARA (PARATHYROID HORMONE) [Concomitant]
     Active Substance: PARATHYROID HORMONE
  3. KIOR-CON [Concomitant]
  4. FLUOXETINE HCI [Concomitant]
     Active Substance: FLUOXETINE HYDROCHLORIDE
  5. CALCITRIOL. [Suspect]
     Active Substance: CALCITRIOL
  6. MAGNESIUM OCIDE [Concomitant]
  7. NORVASC [Concomitant]
     Active Substance: AMLODIPINE BESYLATE
  8. LOSARTAN POTASSIUM. [Concomitant]
     Active Substance: LOSARTAN POTASSIUM
  9. SYNTHROID 88 [Concomitant]
  10. CALCIUM [Concomitant]
     Active Substance: CALCIUM
  11. COREG [Concomitant]
     Active Substance: CARVEDILOL

REACTIONS (4)
  - Drug ineffective [None]
  - Therapy change [None]
  - Blood calcium abnormal [None]
  - Post procedural hypothyroidism [None]
